FAERS Safety Report 8317054-2 (Version None)
Quarter: 2012Q2

REPORT INFORMATION
  Report Type: 
  Country: None (occurrence: None)
  Receive Date: 20120427
  Receipt Date: 20120423
  Transmission Date: 20120825
  Serious: Yes (Other)
  Sender: FDA-Public Use
  Company Number: ES-PFIZER INC-2012100960

PATIENT
  Age: 44 Year
  Sex: Female

DRUGS (4)
  1. ESCITALOPRAM [Interacting]
     Indication: DEPRESSION
     Dosage: 10 MG, 1X/DAY
     Route: 048
     Dates: start: 20110125
  2. ZONEGRAN [Concomitant]
     Dosage: 25 MG, UNK
     Route: 048
     Dates: start: 20091008
  3. CELEBREX [Suspect]
     Indication: PAIN
     Dosage: 200 MG, 1X/DAY
     Route: 048
     Dates: start: 20110906, end: 20111003
  4. LORAZEPAM [Concomitant]
     Dosage: 1 MG, UNK
     Route: 048
     Dates: start: 20100104

REACTIONS (2)
  - DRUG INTERACTION [None]
  - VAGINAL HAEMORRHAGE [None]
